FAERS Safety Report 7601627-6 (Version None)
Quarter: 2011Q2

REPORT INFORMATION
  Report Type: 
  Country: None (occurrence: None)
  Receive Date: 20110630
  Receipt Date: 20110617
  Transmission Date: 20111010
  Serious: Yes (Hospitalization, Other)
  Sender: FDA-Public Use
  Company Number: 2011050207

PATIENT
  Age: 52 Year
  Sex: Female
  Weight: 61.2356 kg

DRUGS (13)
  1. ZOFRAN [Concomitant]
  2. UNKNOWN STUDY MEDICATION [Suspect]
     Indication: NON-SMALL CELL LUNG CANCER
     Dosage: 500 MG (250 MG,2 IN 1 D),ORAL
     Route: 048
     Dates: start: 20110215, end: 20110331
  3. LYRICA [Concomitant]
  4. PREVACID [Concomitant]
  5. NIFEREX FORTE (CYANOCOBALAMIN, FOLIC ACID, CALCIUM ASCORBATE, POLYSACC [Concomitant]
  6. KLONOPIN [Concomitant]
  7. SEROQUEL [Concomitant]
  8. OXYCODONE HCL [Concomitant]
  9. COLACE (DOCUSATE SODIUM) [Concomitant]
  10. SOMA [Suspect]
     Indication: MUSCLE SPASMS
     Dosage: 1400 MG (350 MG,4 IN 1 D),ORAL
     Route: 048
     Dates: start: 20110415, end: 20110416
  11. TRAZODONE HCL [Suspect]
     Indication: INSOMNIA
     Dosage: (50 MG,QHS),ORAL
     Route: 048
     Dates: start: 20110329, end: 20110416
  12. TRAZODONE HCL [Suspect]
     Indication: DEPRESSION
     Dosage: (50 MG,QHS),ORAL
     Route: 048
     Dates: start: 20110329, end: 20110416
  13. OXYCONTIN (OXYCODON HCL) [Concomitant]

REACTIONS (12)
  - SPINAL OPERATION [None]
  - BLOOD CREATINE PHOSPHOKINASE INCREASED [None]
  - HYPOXIA [None]
  - ILEUS [None]
  - PNEUMONIA [None]
  - MENTAL STATUS CHANGES [None]
  - PULMONARY MASS [None]
  - BLOOD CALCIUM DECREASED [None]
  - ANAEMIA [None]
  - SINUS TACHYCARDIA [None]
  - OVERDOSE [None]
  - DEPRESSION [None]
